FAERS Safety Report 5424283-4 (Version None)
Quarter: 2007Q3

REPORT INFORMATION
  Report Type: 
  Country: None (occurrence: None)
  Receive Date: 20070823
  Receipt Date: 20070808
  Transmission Date: 20080115
  Serious: No
  Sender: FDA-Public Use
  Company Number: US-BOEHRINGER INGELHEIM PHARMACEUTICALS, INC.-2007-BP-18851BP

PATIENT
  Age: 50 Year
  Sex: Female

DRUGS (3)
  1. SPIRIVA [Suspect]
     Indication: CHRONIC OBSTRUCTIVE PULMONARY DISEASE
     Route: 055
     Dates: start: 20070708
  2. BLOOD PRESSURE MEDICINE [Concomitant]
  3. ANTIDEPRESSANT [Concomitant]

REACTIONS (3)
  - ARTHRALGIA [None]
  - LOCALISED OEDEMA [None]
  - OEDEMA PERIPHERAL [None]
